FAERS Safety Report 6130591-4 (Version None)
Quarter: 2009Q1

REPORT INFORMATION
  Report Type: 
  Country: None (occurrence: None)
  Receive Date: 20090325
  Receipt Date: 20090316
  Transmission Date: 20090719
  Serious: Yes (Death)
  Sender: FDA-Public Use
  Company Number: DE-RANBAXY-2009RR-22788

PATIENT
  Age: 60 Year
  Sex: Female
  Weight: 70 kg

DRUGS (1)
  1. MIDAZOLAM HCL [Suspect]
     Dosage: 3 MG, UNK
     Route: 042

REACTIONS (2)
  - CARDIAC ARREST [None]
  - OXYGEN SATURATION DECREASED [None]
